FAERS Safety Report 6481469-8 (Version None)
Quarter: 2009Q4

REPORT INFORMATION
  Report Type: 
  Country: None (occurrence: None)
  Receive Date: 20091208
  Receipt Date: 20091124
  Transmission Date: 20100525
  Serious: No
  Sender: FDA-Public Use
  Company Number: US-B.I. PHARMACEUTICALS,INC./RIDGEFIELD-2009-BP-13644BP

PATIENT
  Age: 37 Year
  Sex: Male

DRUGS (3)
  1. ZANTAC 75 [Suspect]
     Indication: DYSPEPSIA
     Dosage: 150 MG
     Route: 048
     Dates: start: 20091123
  2. ZANTAC 75 [Suspect]
     Dosage: 225 MG
     Route: 048
     Dates: start: 20091123, end: 20091123
  3. TUMS [Concomitant]
     Indication: DYSPEPSIA
     Route: 048
     Dates: start: 20091123

REACTIONS (2)
  - OVERDOSE [None]
  - TREMOR [None]
